FAERS Safety Report 7534159-4 (Version None)
Quarter: 2011Q2

REPORT INFORMATION
  Report Type: 
  Country: None (occurrence: None)
  Receive Date: 20110608
  Receipt Date: 20061025
  Transmission Date: 20111010
  Serious: Yes (Death, Hospitalization)
  Sender: FDA-Public Use
  Company Number: PHHO2006BR17453

PATIENT
  Age: 68 Year
  Sex: Male

DRUGS (1)
  1. FORMOTEROL FUMARATE [Suspect]
     Indication: RESPIRATORY DISORDER
     Dosage: 412 UG, BID
     Dates: start: 20050101

REACTIONS (3)
  - RESPIRATORY DISORDER [None]
  - FATIGUE [None]
  - LUNG DISORDER [None]
